FAERS Safety Report 21027747 (Version 1)
Quarter: 2022Q2

REPORT INFORMATION
  Report Type: Spontaneous
  Country: DE (occurrence: None)
  Receive Date: 20220630
  Receipt Date: 20220630
  Transmission Date: 20220720
  Serious: Yes (Other)
  Sender: FDA-Public Use
  Company Number: 2022A231117

PATIENT
  Age: 75 Year
  Sex: Male

DRUGS (9)
  1. DAPAGLIFLOZIN [Suspect]
     Active Substance: DAPAGLIFLOZIN
     Dosage: 10.0MG UNKNOWN
     Route: 048
     Dates: start: 202101
  2. TORSEMIDE [Concomitant]
     Active Substance: TORSEMIDE
     Indication: Cardiac failure
     Route: 065
  3. SIMVASTATIN [Concomitant]
     Active Substance: SIMVASTATIN
     Indication: Cardiac failure
     Route: 065
  4. APIXABAN [Concomitant]
     Active Substance: APIXABAN
     Indication: Cardiac failure
     Dosage: 2X5 MG
     Route: 065
  5. BISOPROLOL [Concomitant]
     Active Substance: BISOPROLOL
     Indication: Cardiac failure
  6. TAFAMIDES [Concomitant]
     Indication: Cardiac failure
     Route: 065
  7. EPLERENONE [Concomitant]
     Active Substance: EPLERENONE
  8. DOXYCYCLINE [Concomitant]
     Active Substance: DOXYCYCLINE
  9. SPIRONOLACTONE [Concomitant]
     Active Substance: SPIRONOLACTONE
     Indication: Cardiac failure
     Route: 065

REACTIONS (9)
  - Left ventricular dysfunction [Unknown]
  - Oedema peripheral [Unknown]
  - General physical health deterioration [Unknown]
  - Peripheral sensory neuropathy [Unknown]
  - Upper gastrointestinal haemorrhage [Unknown]
  - Gastric ulcer haemorrhage [Unknown]
  - Duodenal ulcer haemorrhage [Unknown]
  - Iron deficiency [Unknown]
  - Dyspnoea [Unknown]

NARRATIVE: CASE EVENT DATE: 20220101
